FAERS Safety Report 7089292-0 (Version None)
Quarter: 2010Q4

REPORT INFORMATION
  Report Type: 
  Country: None (occurrence: None)
  Receive Date: 20101108
  Receipt Date: 20101101
  Transmission Date: 20110411
  Serious: Yes (Life-Threatening, Other)
  Sender: FDA-Public Use
  Company Number: TR-GENZYME-CERZ-1001425

PATIENT

DRUGS (4)
  1. CEREZYME [Suspect]
     Indication: GAUCHER'S DISEASE
     Dosage: 120 U/KG, Q2W
     Route: 042
     Dates: start: 20060118
  2. CEREZYME [Suspect]
     Dosage: 60 U/KG, Q2W
     Route: 042
  3. LEVETIRACETAM [Concomitant]
     Indication: EPILEPSY
     Dosage: UNK
     Dates: start: 20100101
  4. PHENOBARBITAL [Concomitant]
     Indication: EPILEPSY
     Dosage: UNK
     Dates: start: 20090501

REACTIONS (3)
  - DISEASE PROGRESSION [None]
  - HEPATOSPLENOMEGALY [None]
  - RESPIRATORY DISTRESS [None]
